FAERS Safety Report 4458103-1 (Version None)
Quarter: 2004Q3

REPORT INFORMATION
  Report Type: 
  Country: None (occurrence: None)
  Receive Date: 20040923
  Receipt Date: 20040917
  Transmission Date: 20050211
  Serious: Yes (Other)
  Sender: FDA-Public Use
  Company Number: 002735

PATIENT
  Age: 64 Year
  Sex: Female

DRUGS (6)
  1. MEDROXYPROGESTERONE ACETATE [Suspect]
     Dates: start: 19880101, end: 19940501
  2. MEDROXYPROGESTERONE ACETATE [Suspect]
     Dates: start: 19950130, end: 19990210
  3. PROVERA [Suspect]
     Dates: start: 19880101, end: 19940501
  4. PREMARIN [Suspect]
     Dates: start: 19880101, end: 19940501
  5. PREMARIN [Suspect]
     Dates: start: 19950130, end: 19990210
  6. MEDROXYPROGESTERONE ACETATE [Suspect]
     Dates: start: 19990210, end: 20020701

REACTIONS (1)
  - BREAST CANCER FEMALE [None]
